FAERS Safety Report 7379205-6 (Version None)
Quarter: 2011Q1

REPORT INFORMATION
  Report Type: 
  Country: None (occurrence: None)
  Receive Date: 20110328
  Receipt Date: 20110216
  Transmission Date: 20110831
  Serious: Yes (Hospitalization)
  Sender: FDA-Public Use
  Company Number: JP-AMGEN-JPNCT2010006076

PATIENT
  Age: 81 Year
  Sex: Female
  Weight: 43 kg

DRUGS (14)
  1. PREDONINE [Suspect]
     Route: 048
  2. SIMVASTATIN [Suspect]
     Route: 048
  3. PANITUMUMAB [Suspect]
     Dosage: 6 MG/KG, Q2WK
     Route: 041
     Dates: start: 20100916, end: 20100930
  4. DECADRON [Suspect]
     Route: 042
  5. ANTIHISTAMINES [Concomitant]
     Indication: PROPHYLAXIS
     Dosage: UNK
     Route: 065
  6. CALCIUM LEVOFOLINATE [Suspect]
     Indication: COLORECTAL CANCER
     Route: 041
     Dates: start: 20100824, end: 20100930
  7. FLUOROURACIL [Suspect]
     Route: 041
     Dates: start: 20100824, end: 20100930
  8. AVASTIN [Suspect]
     Route: 041
     Dates: start: 20100201, end: 20100501
  9. PANITUMUMAB [Suspect]
     Indication: COLORECTAL CANCER METASTATIC
     Dosage: 6 MG/KG, Q2WK
     Route: 041
     Dates: start: 20100824, end: 20100824
  10. IRINOTECAN HYDROCHLORIDE [Suspect]
     Indication: COLORECTAL CANCER
     Route: 041
     Dates: start: 20100824, end: 20100930
  11. KYTRIL [Suspect]
     Route: 042
  12. CORTICOSTEROIDS [Concomitant]
     Indication: PROPHYLAXIS
     Dosage: UNK
     Route: 065
  13. FLUOROURACIL [Suspect]
     Indication: COLORECTAL CANCER
     Route: 040
     Dates: start: 20100824, end: 20100930
  14. AVASTIN [Suspect]
     Indication: COLORECTAL CANCER
     Dosage: UNK
     Route: 041
     Dates: start: 20090601, end: 20100101

REACTIONS (4)
  - DECREASED APPETITE [None]
  - DEEP VEIN THROMBOSIS [None]
  - HYPOMAGNESAEMIA [None]
  - DERMATITIS ACNEIFORM [None]
